FAERS Safety Report 6232760-1 (Version None)
Quarter: 2009Q2

REPORT INFORMATION
  Report Type: 
  Country: None (occurrence: None)
  Receive Date: 20090612
  Receipt Date: 20090612
  Transmission Date: 20091009
  Serious: No
  Sender: FDA-Public Use
  Company Number: None

PATIENT
  Age: 46 Year
  Sex: Female
  Weight: 79.8331 kg

DRUGS (1)
  1. KAPIDEX [Suspect]
     Indication: GASTROOESOPHAGEAL REFLUX DISEASE
     Dosage: 1 DAILY PO
     Route: 048
     Dates: start: 20090605, end: 20090608

REACTIONS (5)
  - EAR PRURITUS [None]
  - NO THERAPEUTIC RESPONSE [None]
  - ORAL PRURITUS [None]
  - PRURITUS [None]
  - URTICARIA [None]
